FAERS Safety Report 6449739-7 (Version None)
Quarter: 2009Q4

REPORT INFORMATION
  Report Type: 
  Country: None (occurrence: None)
  Receive Date: 20091120
  Receipt Date: 20091109
  Transmission Date: 20100525
  Serious: Yes (Hospitalization)
  Sender: FDA-Public Use
  Company Number: IT-WATSON-2009-09627

PATIENT
  Age: 26 Year
  Sex: Male

DRUGS (1)
  1. METHYLPREDNISOLONE ACETATE [Suspect]
     Indication: MASS
     Dosage: 1000 MG, DAILY
     Route: 042
     Dates: start: 20070515

REACTIONS (2)
  - ANGINA PECTORIS [None]
  - ELECTROCARDIOGRAM T WAVE INVERSION [None]
